FAERS Safety Report 24065391 (Version 1)
Quarter: 2024Q3

REPORT INFORMATION
  Report Type: Spontaneous
  Country: US (occurrence: US)
  Receive Date: 20240709
  Receipt Date: 20240709
  Transmission Date: 20241017
  Serious: Yes (Disabling, Other)
  Sender: ALVA-AMCO
  Company Number: US-Alva-Amco Pharmacal Companies, Inc.-2158923

PATIENT

DRUGS (1)
  1. DIUREX ULTRA [Suspect]
     Active Substance: CAFFEINE
     Indication: Polyuria
     Route: 048
     Dates: start: 20240616

REACTIONS (4)
  - Migraine [Recovering/Resolving]
  - Fracture [Recovering/Resolving]
  - Fall [Recovering/Resolving]
  - Diplopia [Recovering/Resolving]

NARRATIVE: CASE EVENT DATE: 20240616
